FAERS Safety Report 20068540 (Version 2)
Quarter: 2021Q4

REPORT INFORMATION
  Report Type: Spontaneous
  Country: US (occurrence: US)
  Receive Date: 20211115
  Receipt Date: 20211216
  Transmission Date: 20220303
  Serious: Yes (Other)
  Sender: FDA-Public Use
  Company Number: US-PFIZER INC-202101505709

PATIENT
  Age: 74 Year
  Sex: Female

DRUGS (1)
  1. IBRANCE [Suspect]
     Active Substance: PALBOCICLIB
     Indication: Breast cancer metastatic
     Dosage: 75 MG, CYCLIC

REACTIONS (7)
  - Pneumonia [Unknown]
  - Product dose omission issue [Unknown]
  - COVID-19 [Unknown]
  - Neutrophil count decreased [Unknown]
  - Neoplasm progression [Recovered/Resolved]
  - Anxiety [Unknown]
  - Psychiatric symptom [Recovering/Resolving]
